FAERS Safety Report 13667680 (Version 1)
Quarter: 2017Q2

REPORT INFORMATION
  Report Type: Spontaneous
  Country: FR (occurrence: FR)
  Receive Date: 20170620
  Receipt Date: 20170620
  Transmission Date: 20170830
  Serious: Yes (Other)
  Sender: FDA-Public Use
  Company Number: FR-ROCHE-1951869

PATIENT
  Age: 24 Year
  Sex: Female

DRUGS (10)
  1. CELLCEPT [Suspect]
     Active Substance: MYCOPHENOLATE MOFETIL\MYCOPHENOLATE MOFETIL HYDROCHLORIDE
     Indication: LIVER TRANSPLANT
     Route: 048
     Dates: start: 20170515, end: 20170520
  2. PHOCYTAN [Concomitant]
     Active Substance: .ALPHA.-GLUCOSE-1-PHOSPHATE
  3. SOLU-MEDROL [Suspect]
     Active Substance: METHYLPREDNISOLONE SODIUM SUCCINATE
     Indication: LIVER TRANSPLANT
     Route: 048
     Dates: start: 20170515
  4. VITAMIN K [Concomitant]
     Active Substance: PHYTONADIONE
  5. CEFOTAXIME [Concomitant]
     Active Substance: CEFOTAXIME SODIUM
  6. FLUIMUCIL [Concomitant]
     Active Substance: ACETYLCYSTEINE
     Route: 042
  7. PROGRAF [Suspect]
     Active Substance: TACROLIMUS\TACROLIMUS ANHYDROUS
     Indication: LIVER TRANSPLANT
     Dosage: 0.5 MG/DAY FOR 3 DAYS THEN ADJUSTMENT TO 2 MG/12 HOURS
     Route: 048
     Dates: start: 20170515
  8. LACTULOSE. [Concomitant]
     Active Substance: LACTULOSE
     Route: 048
     Dates: start: 20170512, end: 20170514
  9. MORPHINE [Concomitant]
     Active Substance: MORPHINE
     Dosage: 1 AT 2.5 MG/H
     Route: 041
     Dates: start: 20170515
  10. FLAGYL [Concomitant]
     Active Substance: METRONIDAZOLE\METRONIDAZOLE HYDROCHLORIDE

REACTIONS (1)
  - Agranulocytosis [Recovered/Resolved]

NARRATIVE: CASE EVENT DATE: 20170520
